FAERS Safety Report 8965771 (Version 1)
Quarter: 2012Q4

REPORT INFORMATION
  Report Type: 
  Country: US (occurrence: US)
  Receive Date: 20121217
  Receipt Date: 20121217
  Transmission Date: 20130627
  Serious: No
  Sender: FDA-Public Use
  Company Number: US-009507513-2012SP007609

PATIENT
  Age: 48 None
  Sex: Female

DRUGS (2)
  1. SAPHRIS [Suspect]
     Indication: DEPRESSION
     Dosage: 5 mg, QD
     Route: 060
     Dates: start: 20120208, end: 20120209
  2. SAPHRIS [Suspect]
     Indication: ANXIETY

REACTIONS (9)
  - Crying [Recovering/Resolving]
  - Insomnia [Recovering/Resolving]
  - Hypoaesthesia oral [Recovering/Resolving]
  - Restless legs syndrome [Recovering/Resolving]
  - Vomiting [Not Recovered/Not Resolved]
  - Ageusia [Not Recovered/Not Resolved]
  - Underdose [Recovered/Resolved]
  - Inappropriate schedule of drug administration [Recovered/Resolved]
  - Off label use [Unknown]
